FAERS Safety Report 6880540-6 (Version None)
Quarter: 2010Q3

REPORT INFORMATION
  Report Type: 
  Country: None (occurrence: None)
  Receive Date: 20100728
  Receipt Date: 20100720
  Transmission Date: 20110219
  Serious: Yes (Other)
  Sender: FDA-Public Use
  Company Number: FR-MPIJNJ-2010-03841

PATIENT

DRUGS (4)
  1. VELCADE [Suspect]
     Indication: MULTIPLE MYELOMA
     Dosage: 1.3 MG/M2, UNK
     Route: 065
     Dates: start: 20100209, end: 20100504
  2. MELPHALAN [Concomitant]
  3. PREDNISOLONE [Concomitant]
  4. PREDNISONE [Concomitant]

REACTIONS (3)
  - DRUG EFFECT DECREASED [None]
  - RENAL FAILURE ACUTE [None]
  - SEPTIC SHOCK [None]
